FAERS Safety Report 19520022 (Version 1)
Quarter: 2021Q3

REPORT INFORMATION
  Report Type: Spontaneous
  Country: BE (occurrence: BE)
  Receive Date: 20210712
  Receipt Date: 20210712
  Transmission Date: 20211014
  Serious: Yes (Death, Other)
  Sender: FDA-Public Use
  Company Number: BE-SA-2021SA227295

PATIENT
  Age: 76 Year
  Sex: Female
  Weight: 107.7 kg

DRUGS (7)
  1. MOXONIDINE [Concomitant]
     Active Substance: MOXONIDINE
     Dosage: UNK UNK, QD,EVENING
  2. CLEXANE [Suspect]
     Active Substance: ENOXAPARIN SODIUM
     Indication: ATRIAL FLUTTER
     Dosage: 200 MG, QD
     Route: 058
     Dates: start: 20210304, end: 20210309
  3. ZOLPIDEM [Concomitant]
     Active Substance: ZOLPIDEM TARTRATE
     Dosage: COUCHER
  4. DAFALGAN [Concomitant]
     Active Substance: ACETAMINOPHEN
     Dosage: 1/2 TABLET 4X / DAY
  5. FOLAVIT [Concomitant]
     Active Substance: FOLIC ACID
     Dosage: UNK UNK, QD,MORNING
  6. TRADONAL [Concomitant]
     Active Substance: TRAMADOL HYDROCHLORIDE
     Dosage: UNK UNK, BID(MORNING AND EVENING)
  7. AMLODIPINE [Concomitant]
     Active Substance: AMLODIPINE BESYLATE
     Dosage: 1 DF

REACTIONS (7)
  - Shock [Fatal]
  - Abdominal pain lower [Fatal]
  - Haemorrhage [Fatal]
  - Haematoma muscle [Fatal]
  - Abdominal pain upper [Fatal]
  - Pain [Fatal]
  - Death [Fatal]

NARRATIVE: CASE EVENT DATE: 20210309
